FAERS Safety Report 10803505 (Version 1)
Quarter: 2015Q1

REPORT INFORMATION
  Report Type: Spontaneous
  Country: US (occurrence: US)
  Receive Date: 20150217
  Receipt Date: 20150217
  Transmission Date: 20150721
  Serious: No
  Sender: FDA-Public Use
  Company Number: US-GLAXOSMITHKLINE-US2014044268

PATIENT
  Age: 56 Year
  Sex: Male

DRUGS (1)
  1. VENTOLIN HFA [Suspect]
     Active Substance: ALBUTEROL SULFATE

REACTIONS (1)
  - Medication error [Recovered/Resolved]

NARRATIVE: CASE EVENT DATE: 20141230
